FAERS Safety Report 17683090 (Version 1)
Quarter: 2020Q2

REPORT INFORMATION
  Report Type: Spontaneous
  Country: US (occurrence: US)
  Receive Date: 20200420
  Receipt Date: 20200420
  Transmission Date: 20200714
  Serious: Yes (Other)
  Sender: FDA-Public Use
  Company Number: US-ROCHE-2582476

PATIENT
  Sex: Female
  Weight: 65.38 kg

DRUGS (1)
  1. OCREVUS [Suspect]
     Active Substance: OCRELIZUMAB
     Indication: MULTIPLE SCLEROSIS
     Route: 042
     Dates: start: 2018

REACTIONS (4)
  - Foot fracture [Recovered/Resolved]
  - Gait disturbance [Not Recovered/Not Resolved]
  - Fall [Unknown]
  - Ill-defined disorder [Not Recovered/Not Resolved]

NARRATIVE: CASE EVENT DATE: 2019
